FAERS Safety Report 4549798-2 (Version None)
Quarter: 2005Q1

REPORT INFORMATION
  Report Type: 
  Country: None (occurrence: None)
  Receive Date: 20050111
  Receipt Date: 20050105
  Transmission Date: 20050727
  Serious: Yes (Life-Threatening)
  Sender: FDA-Public Use
  Company Number: DE-MERCK-0501DEU00088

PATIENT
  Age: 58 Year
  Sex: Female

DRUGS (3)
  1. VIOXX [Suspect]
     Indication: PREMEDICATION
     Route: 048
     Dates: start: 20040906, end: 20040906
  2. PIRITRAMIDE [Concomitant]
     Indication: ANALGESIC THERAPY
     Route: 048
     Dates: start: 20040906, end: 20040906
  3. PRILOCAINE HYDROCHLORIDE [Concomitant]
     Indication: ANAESTHESIA
     Route: 065
     Dates: start: 20040906, end: 20040906

REACTIONS (3)
  - ANGIONEUROTIC OEDEMA [None]
  - HYPOTENSION [None]
  - URTICARIA [None]
